FAERS Safety Report 14358239 (Version 2)
Quarter: 2020Q2

REPORT INFORMATION
  Report Type: Report from Study
  Country: US (occurrence: US)
  Receive Date: 20180105
  Receipt Date: 20200625
  Transmission Date: 20200713
  Serious: No
  Sender: FDA-Public Use
  Company Number: US-SA-2017SA195374

PATIENT
  Sex: Female

DRUGS (7)
  1. LEXAPRO [Concomitant]
     Active Substance: ESCITALOPRAM OXALATE
     Indication: ANXIETY
     Dosage: 10 MG
     Dates: start: 2010
  2. XANAX [Concomitant]
     Active Substance: ALPRAZOLAM
     Indication: ANXIETY
     Dosage: .5 MG,UNK
     Route: 065
     Dates: start: 2010
  3. DUPILUMAB [Suspect]
     Active Substance: DUPILUMAB
     Indication: ECZEMA
     Dosage: 300 MG, QOW
     Route: 058
     Dates: start: 2017, end: 2017
  4. XIPAMIDE [Concomitant]
     Active Substance: XIPAMIDE
     Indication: DRY SKIN
     Dosage: UNK UNK,UNK
     Route: 065
     Dates: start: 1980
  5. EUCERIN [PARAFFIN, LIQUID;PETROLATUM;WOOL FAT] [Concomitant]
     Dosage: UNK UNK,UNK
     Route: 065
  6. DUPILUMAB [Suspect]
     Active Substance: DUPILUMAB
     Indication: DERMATITIS ATOPIC
     Dosage: 600 MG, 1X
     Route: 058
     Dates: start: 201705, end: 201705
  7. AQUAPHOR [MINERAL OIL LIGHT;PARAFFIN;PETROLATUM;WOOL ALCOHOLS] [Concomitant]
     Indication: DRY SKIN
     Dosage: 0.5 UNK
     Dates: start: 1980

REACTIONS (6)
  - Weight decreased [Recovered/Resolved]
  - Injection site bruising [Not Recovered/Not Resolved]
  - Flushing [Recovered/Resolved]
  - Hair growth abnormal [Recovered/Resolved]
  - Alopecia [Recovered/Resolved]
  - Alopecia totalis [Recovered/Resolved]

NARRATIVE: CASE EVENT DATE: 2017
